FAERS Safety Report 14766155 (Version 4)
Quarter: 2022Q4

REPORT INFORMATION
  Report Type: Report from Study
  Country: JP (occurrence: JP)
  Receive Date: 20180416
  Receipt Date: 20221212
  Transmission Date: 20230113
  Serious: Yes (Life-Threatening, Hospitalization, Other)
  Sender: FDA-Public Use
  Company Number: JP-BRISTOL-MYERS SQUIBB COMPANY-BMS-2018-034514

PATIENT
  Age: 78 Year
  Sex: Male
  Weight: 41 kg

DRUGS (23)
  1. ABRAXANE [Suspect]
     Active Substance: PACLITAXEL
     Indication: Gastric cancer
     Dosage: 130 MG, QD (Q1 WEEK FOR 3 CONSECUTIVE WEEKS)
     Route: 042
     Dates: start: 20180914
  2. RAMUCIRUMAB [Suspect]
     Active Substance: RAMUCIRUMAB
     Indication: Gastric cancer
     Dosage: 320 MG, Q3WK
     Route: 042
     Dates: start: 20180914
  3. OXALIPLATIN [Suspect]
     Active Substance: OXALIPLATIN
     Indication: Gastric cancer
     Route: 042
     Dates: start: 20180314, end: 20180824
  4. OXALIPLATIN [Suspect]
     Active Substance: OXALIPLATIN
     Dosage: UNK
     Dates: start: 20180404
  5. GIMERACIL\OTERACIL\TEGAFUR [Suspect]
     Active Substance: GIMERACIL\OTERACIL\TEGAFUR
     Indication: Gastric cancer
     Route: 048
     Dates: start: 20180314, end: 20180824
  6. GIMERACIL\OTERACIL\TEGAFUR [Suspect]
     Active Substance: GIMERACIL\OTERACIL\TEGAFUR
     Dates: start: 20180404
  7. DEXAMETHASONE SODIUM PHOSPHATE [Concomitant]
     Active Substance: DEXAMETHASONE SODIUM PHOSPHATE
     Indication: Product used for unknown indication
     Dosage: UNK
     Dates: start: 20180314
  8. DEXAMETHASONE SODIUM PHOSPHATE [Concomitant]
     Active Substance: DEXAMETHASONE SODIUM PHOSPHATE
     Dosage: 6.6 MG, AT ADMINISTRATION OF ANTICANCER AGENT
     Route: 042
     Dates: start: 20180914
  9. EMEND                              /01627301/ [Concomitant]
     Indication: Product used for unknown indication
     Dosage: UNK
     Dates: start: 20180314
  10. DECADRON [Concomitant]
     Active Substance: DEXAMETHASONE
     Indication: Product used for unknown indication
     Dosage: UNK
     Dates: start: 20180314
  11. LANSOPRAZOLE [Concomitant]
     Active Substance: LANSOPRAZOLE
     Indication: Gastric cancer
     Dosage: 15 MG, EVERYDAY
     Route: 050
     Dates: start: 20180314
  12. SUCRALFATE [Concomitant]
     Active Substance: SUCRALFATE
     Indication: Product used for unknown indication
     Dosage: UNK
     Dates: start: 20180306
  13. ENSURE                             /07421001/ [Concomitant]
     Indication: Product used for unknown indication
     Dosage: UNK
     Dates: start: 20180306
  14. POLARAMINE [Concomitant]
     Active Substance: DEXCHLORPHENIRAMINE MALEATE
     Indication: Product used for unknown indication
     Dosage: 5 MG, AT ADMINISTRATION OF ANTICANCER AGENT
     Route: 042
     Dates: start: 20180914
  15. AMINO ACIDS\DEXTROSE\ELECTROLYTES NOS\SOYBEAN OIL\VITAMINS [Concomitant]
     Active Substance: AMINO ACIDS\DEXTROSE\ELECTROLYTES NOS\SOYBEAN OIL\VITAMINS
     Indication: Enteral nutrition
     Dosage: 1 G, Q8H
     Route: 050
     Dates: start: 20180423
  16. MIYARI BACTERIA [Concomitant]
     Indication: Product used for unknown indication
     Dosage: UNK
     Dates: start: 20180706
  17. ALOXI [Concomitant]
     Active Substance: PALONOSETRON HYDROCHLORIDE
     Indication: Product used for unknown indication
     Dosage: UNK
     Dates: start: 20180314
  18. CYRAMZA [Concomitant]
     Active Substance: RAMUCIRUMAB
     Indication: Gastric cancer
     Dosage: 320 MG, Q3W
     Route: 041
     Dates: start: 20180914
  19. MIYA-BM [Concomitant]
     Active Substance: CLOSTRIDIUM BUTYRICUM SPORES STRAIN M-55
     Indication: Dysbiosis
     Dosage: 1 G, Q8H
     Route: 050
     Dates: start: 20180706
  20. SULFAMETHOXAZOLE\TRIMETHOPRIM [Concomitant]
     Active Substance: SULFAMETHOXAZOLE\TRIMETHOPRIM
     Indication: Acute respiratory distress syndrome
     Dosage: 1 MG
     Route: 050
     Dates: start: 20180930
  21. PREDNISOLONE [Concomitant]
     Active Substance: PREDNISOLONE
     Indication: Acute respiratory distress syndrome
     Dosage: 5 MG, EVERYDAY
     Route: 050
     Dates: start: 20181025
  22. PREDNISOLONE [Concomitant]
     Active Substance: PREDNISOLONE
     Indication: Pneumocystis jirovecii pneumonia
  23. RINDERON VG [Concomitant]
     Active Substance: BETAMETHASONE VALERATE\GENTAMICIN SULFATE
     Indication: Erythema
     Dosage: PROPER QUANTITY, EVERYDAY
     Route: 062
     Dates: start: 20181120

REACTIONS (3)
  - Acute respiratory distress syndrome [Recovered/Resolved]
  - Dehydration [Recovered/Resolved]
  - Febrile neutropenia [Recovered/Resolved]

NARRATIVE: CASE EVENT DATE: 20180410
